FAERS Safety Report 19744536 (Version 1)
Quarter: 2021Q3

REPORT INFORMATION
  Report Type: Spontaneous
  Country: US (occurrence: US)
  Receive Date: 20210823
  Receipt Date: 20210823
  Transmission Date: 20211014
  Serious: Yes (Death)
  Sender: FDA-Public Use
  Company Number: None

PATIENT
  Sex: Female

DRUGS (12)
  1. SYMBICORT  AER [Concomitant]
  2. SILDENAFIL 20 MG TAB [Suspect]
     Active Substance: SILDENAFIL
     Indication: PULMONARY HYPERTENSION
     Dosage: TAKE 1 TABLET BY MOUTH THREE TIMES DAILY
     Route: 048
     Dates: start: 20200616
  3. ASPIRIN. [Concomitant]
     Active Substance: ASPIRIN
  4. CETAPHIL CRE HAND [Concomitant]
  5. IRON [Concomitant]
     Active Substance: IRON
  6. LIPITOR [Concomitant]
     Active Substance: ATORVASTATIN CALCIUM
  7. MUCINEX [Concomitant]
     Active Substance: GUAIFENESIN
  8. TRAZODONE [Concomitant]
     Active Substance: TRAZODONE HYDROCHLORIDE
  9. PRILOSEC OTC [Concomitant]
     Active Substance: OMEPRAZOLE MAGNESIUM
  10. LOSARTAN POT [Concomitant]
     Active Substance: LOSARTAN POTASSIUM
  11. CALCIUM [Concomitant]
     Active Substance: CALCIUM
  12. COREG [Concomitant]
     Active Substance: CARVEDILOL

REACTIONS (1)
  - Death [None]
